FAERS Safety Report 23660977 (Version 2)
Quarter: 2024Q2

REPORT INFORMATION
  Report Type: Spontaneous
  Country: US (occurrence: US)
  Receive Date: 20240322
  Receipt Date: 20240405
  Transmission Date: 20240716
  Serious: Yes (Other)
  Sender: FDA-Public Use
  Company Number: US-ALCON LABORATORIES-ALC2024US001518

PATIENT
  Age: 62 Year
  Sex: Female

DRUGS (1)
  1. SYSTANE LUBRICANT [Suspect]
     Active Substance: POLYETHYLENE GLYCOL 400\PROPYLENE GLYCOL
     Indication: Product used for unknown indication
     Dosage: 1 DROP IN EACH EYE AS NEEDED
     Route: 047

REACTIONS (3)
  - Vitreous detachment [Recovered/Resolved]
  - Product delivery mechanism issue [Unknown]
  - Wrong technique in product usage process [Unknown]
